FAERS Safety Report 22305577 (Version 1)
Quarter: 2023Q2

REPORT INFORMATION
  Report Type: Spontaneous
  Country: FR (occurrence: FR)
  Receive Date: 20230510
  Receipt Date: 20230510
  Transmission Date: 20230722
  Serious: Yes (Other)
  Sender: FDA-Public Use
  Company Number: None

PATIENT
  Age: 35 Year
  Sex: Female
  Weight: 66 kg

DRUGS (4)
  1. PREVYMIS [Suspect]
     Active Substance: LETERMOVIR
     Indication: Antiviral prophylaxis
     Dosage: 480 MILLIGRAM, QD
     Route: 048
     Dates: start: 20221003, end: 20230307
  2. PREVYMIS [Suspect]
     Active Substance: LETERMOVIR
     Dosage: 480 MILLIGRAM, QD
     Route: 048
     Dates: start: 202203, end: 202206
  3. RUXOLITINIB [Suspect]
     Active Substance: RUXOLITINIB
     Indication: Graft versus host disease in skin
     Dosage: 10 MILLIGRAM, QD
     Route: 048
     Dates: start: 20220902, end: 20230307
  4. PLAQUENIL [Suspect]
     Active Substance: HYDROXYCHLOROQUINE SULFATE
     Indication: Systemic lupus erythematosus
     Dosage: 600 MILLIGRAM, QD
     Route: 048
     Dates: start: 20230103, end: 20230307

REACTIONS (1)
  - Agranulocytosis [Recovered/Resolved]

NARRATIVE: CASE EVENT DATE: 20230306
